APPROVED DRUG PRODUCT: CYCLOPENTOLATE HYDROCHLORIDE
Active Ingredient: CYCLOPENTOLATE HYDROCHLORIDE
Strength: 1%
Dosage Form/Route: SOLUTION/DROPS;OPHTHALMIC
Application: A089162 | Product #001
Applicant: ALCON PHARMACEUTICALS LTD
Approved: Jan 24, 1991 | RLD: No | RS: No | Type: DISCN